FAERS Safety Report 5586795-2 (Version None)
Quarter: 2008Q1

REPORT INFORMATION
  Report Type: 
  Country: None (occurrence: None)
  Receive Date: 20080110
  Receipt Date: 20080108
  Transmission Date: 20080703
  Serious: Yes (Hospitalization)
  Sender: FDA-Public Use
  Company Number: FR-WYE-G00855808

PATIENT
  Sex: Female
  Weight: 22.7 kg

DRUGS (7)
  1. TAZOCILLINE [Suspect]
     Indication: FEBRILE NEUTROPENIA
     Route: 042
     Dates: start: 20070716, end: 20070802
  2. DOLIPRANE [Suspect]
     Indication: PAIN
     Route: 048
     Dates: start: 20070704
  3. TRANXENE [Suspect]
     Dosage: UNKNOWN
     Dates: start: 20070725
  4. VANCOMYCIN [Suspect]
     Indication: FEBRILE NEUTROPENIA
     Route: 042
     Dates: start: 20070722
  5. AMBISOME [Suspect]
     Indication: FEBRILE NEUTROPENIA
     Route: 042
     Dates: start: 20070724
  6. BACTRIM [Suspect]
     Indication: PNEUMOCYSTIS JIROVECI PNEUMONIA
     Route: 048
     Dates: start: 20070703, end: 20070802
  7. NALBUPHINE [Suspect]
     Indication: PAIN
     Route: 042
     Dates: start: 20070704

REACTIONS (2)
  - HISTIOCYTOSIS HAEMATOPHAGIC [None]
  - RASH GENERALISED [None]
